FAERS Safety Report 10635633 (Version 2)
Quarter: 2014Q4

REPORT INFORMATION
  Report Type: Spontaneous
  Country: FR (occurrence: FR)
  Receive Date: 20141205
  Receipt Date: 20141212
  Transmission Date: 20150529
  Serious: Yes (Hospitalization, Other)
  Sender: FDA-Public Use
  Company Number: FR-ASTRAZENECA-2014SE92651

PATIENT
  Age: 29307 Day
  Sex: Female

DRUGS (4)
  1. LOVENOX [Concomitant]
     Active Substance: ENOXAPARIN SODIUM
     Indication: ANTICOAGULANT THERAPY
     Dates: start: 201409
  2. AUGMENTIN [Suspect]
     Active Substance: AMOXICILLIN\CLAVULANATE POTASSIUM
     Dosage: 1 G/125 MG AMOXICILLIN/ CLAVULANIC ACID RATIO 8/1, 3 DF, DAILY
     Route: 048
     Dates: start: 20141011, end: 20141019
  3. OMNIPAQUE [Suspect]
     Active Substance: IOHEXOL
     Indication: COMPUTERISED TOMOGRAM
     Dosage: 350 MG OF IODINE PER ML, SINGLE ADMINISTRATION
     Route: 042
     Dates: start: 20141011, end: 20141011
  4. INEXIUM [Suspect]
     Active Substance: ESOMEPRAZOLE
     Route: 048
     Dates: start: 20141010, end: 20141027

REACTIONS (5)
  - Acute kidney injury [Not Recovered/Not Resolved]
  - Systemic inflammatory response syndrome [Unknown]
  - Nephropathy toxic [Unknown]
  - Pulmonary embolism [Unknown]
  - Respiratory disorder [Unknown]

NARRATIVE: CASE EVENT DATE: 20141010
